FAERS Safety Report 4489224-5 (Version None)
Quarter: 2004Q4

REPORT INFORMATION
  Report Type: 
  Country: None (occurrence: None)
  Receive Date: 20041029
  Receipt Date: 20041014
  Transmission Date: 20050328
  Serious: Yes (Hospitalization)
  Sender: FDA-Public Use
  Company Number: JP-MERCK-0410USA04372

PATIENT
  Age: 70 Year
  Sex: Female

DRUGS (2)
  1. NOROXIN [Suspect]
     Indication: NASOPHARYNGITIS
     Route: 048
     Dates: start: 20040521, end: 20040521
  2. PONTAL [Suspect]
     Indication: NASOPHARYNGITIS
     Route: 048
     Dates: start: 20040521, end: 20040522

REACTIONS (3)
  - LYMPHOCYTE STIMULATION TEST POSITIVE [None]
  - MALAISE [None]
  - RASH GENERALISED [None]
